FAERS Safety Report 8796155 (Version 1)
Quarter: 2012Q4

REPORT INFORMATION
  Report Type: 
  Country: BR (occurrence: BR)
  Receive Date: 20120920
  Receipt Date: 20120920
  Transmission Date: 20130627
  Serious: Yes (Hospitalization)
  Sender: FDA-Public Use
  Company Number: BR-PFIZER INC-2012231185

PATIENT
  Age: 79 Year
  Sex: Female
  Weight: 89 kg

DRUGS (13)
  1. EFEXOR XR [Suspect]
     Indication: CHRONIC OBSTRUCTIVE PULMONARY DISEASE
     Dosage: 75 mg, 1x/day
     Route: 048
     Dates: start: 20080917
  2. EFEXOR XR [Suspect]
     Indication: PULMONARY OEDEMA
  3. ATROVENT [Concomitant]
     Indication: CHRONIC OBSTRUCTIVE PULMONARY DISEASE
     Dosage: inhale 30 drops 3x/day
     Route: 055
     Dates: start: 2008
  4. AZITHROMYCIN [Concomitant]
     Indication: ANTIBIOTIC THERAPY
     Dosage: 0.5 DF, daily
  5. ENALAPRIL [Concomitant]
     Indication: BLOOD PRESSURE
     Dosage: 2 DF, daily
     Dates: start: 2011
  6. FLUIMICIL [Concomitant]
     Indication: LUNG DISORDER
     Dosage: UNK, 3x/day
  7. LASIX [Concomitant]
     Indication: DIURETIC THERAPY
     Dosage: 1 DF, daily
     Dates: start: 201208
  8. LEXOTAN [Concomitant]
     Indication: LUNG DISORDER
     Dosage: 2 DF, daily
     Dates: start: 2010
  9. MAREVAN [Concomitant]
     Indication: COAGULOPATHY
     Dosage: 1 DF, daily
  10. ONBRIZE [Concomitant]
     Indication: DYSPNOEA
     Dosage: 1 DF, daily
  11. OXIMAX [Concomitant]
     Indication: CHRONIC OBSTRUCTIVE PULMONARY DISEASE
     Dosage: 1 DF, daily
  12. RETEMIC [Concomitant]
     Indication: URINARY RETENTION
     Dosage: UNK
  13. SPIRIVA [Concomitant]
     Indication: CHRONIC OBSTRUCTIVE PULMONARY DISEASE
     Dosage: 2 DF, daily

REACTIONS (4)
  - Intentional drug misuse [Unknown]
  - Pulmonary oedema [Unknown]
  - Chronic obstructive pulmonary disease [Unknown]
  - Blood pressure increased [Recovered/Resolved]
